FAERS Safety Report 9520841 (Version 2)
Quarter: 2014Q1

REPORT INFORMATION
  Report Type: Spontaneous
  Country: US (occurrence: None)
  Receive Date: 20130305
  Receipt Date: 20140306
  Transmission Date: 20141002
  Serious: Yes (Disabling, Other)
  Sender: FDA-Public Use
  Company Number: 163-21880-12102452

PATIENT
  Age: 74 Year
  Sex: Male
  Weight: 67.13 kg

DRUGS (30)
  1. REVLIMID [Suspect]
     Indication: PLASMA CELL MYELOMA
     Route: 048
     Dates: start: 20120216
  2. GABAPENTIN [Concomitant]
  3. ACYCLOVIR (ACICLOVIR) (ACICLOVIR) [Concomitant]
  4. CYMBALTA (DULOXETINE HYDROCHLORIDE) [Concomitant]
  5. FISH OIL [Concomitant]
  6. PANTOPRAZOLE [Concomitant]
  7. ASPIRIN (ACETYLSALICYLIC ACID) [Concomitant]
  8. AMITRIPTYLINE [Concomitant]
  9. COLACE (DOCUSATE SODIUM) [Concomitant]
  10. SENNA [Concomitant]
  11. VITAMIN B12 (CYANOCOBALAMIN) [Concomitant]
  12. VITAMIN B [Concomitant]
  13. COQ10 (UBIDECARENONE) [Concomitant]
  14. LOSARTAN/HCTZ (HYDROCHLOROTHIAZIDE W/LOSARTAN) [Concomitant]
  15. BETAMETHASONE VALERATE [Concomitant]
  16. CALCITRIOL [Concomitant]
  17. IRON [Concomitant]
  18. MECLIZINE (MECLOZINE) [Concomitant]
  19. OXYCONTIN (OXYCODONE HYDROCHLORIDE) [Concomitant]
  20. STEROID [Concomitant]
  21. CETIRIZINE (CETIRIZINE HYDROCHLORIDE) [Concomitant]
  22. VALTREX (VALACICLOVIR HYDROCHLORIDE) [Concomitant]
  23. DEXAMETHASONE [Concomitant]
  24. ZYRTEC (CETIRIZINE HYDROCHLORIDE) [Concomitant]
  25. AVELOX (MOXIFLOXACIN HYDROCHLORIDE) [Concomitant]
  26. CYCLOBENZAPRINE HCL [Concomitant]
  27. ONDANSETRON HCL [Concomitant]
  28. PROTONIX [Concomitant]
  29. DIAZEPAM [Concomitant]
  30. HYZAAR [Concomitant]

REACTIONS (8)
  - Neuropathy peripheral [None]
  - Arthropathy [None]
  - Blood creatinine increased [None]
  - Pain in extremity [None]
  - Hypoaesthesia [None]
  - Pruritus [None]
  - Rash [None]
  - Musculoskeletal pain [None]
